FAERS Safety Report 26044741 (Version 2)
Quarter: 2025Q4

REPORT INFORMATION
  Report Type: Spontaneous
  Country: JP (occurrence: JP)
  Receive Date: 20251114
  Receipt Date: 20251126
  Transmission Date: 20260118
  Serious: Yes (Life-Threatening, Hospitalization, Other)
  Sender: BRISTOL-MYERS SQUIBB COMPANY
  Company Number: JP-BRISTOL-MYERS SQUIBB COMPANY-2025-134563

PATIENT
  Age: 76 Year
  Sex: Male
  Weight: 46.8 kg

DRUGS (11)
  1. YERVOY [Suspect]
     Active Substance: IPILIMUMAB
     Indication: Non-small cell lung cancer
     Route: 041
     Dates: start: 20241029, end: 20241211
  2. OPDIVO [Suspect]
     Active Substance: NIVOLUMAB
     Indication: Non-small cell lung cancer
     Route: 041
     Dates: start: 20241029, end: 20250418
  3. PREGABALIN [Concomitant]
     Active Substance: PREGABALIN
     Indication: Product used for unknown indication
     Dosage: TWICE A DAY, AFTER BREAKFAST AND DINNER, FOR 21 DAYS
  4. CALONAL [Concomitant]
     Active Substance: ACETAMINOPHEN
     Indication: Product used for unknown indication
     Dosage: 4 TIMES A DAY WHEN WAKING UP IN THE MORNING, AFTER LUNCH AND DINNER, BEFORE GOING TO BED FOR 21 DAYS
  5. SYMPROIC [Concomitant]
     Active Substance: NALDEMEDINE TOSYLATE
     Indication: Product used for unknown indication
     Dosage: AFTER DINNER ONCE A DAY, FOR 21 DAYS
  6. OXYCODONE [Concomitant]
     Active Substance: OXYCODONE
     Indication: Product used for unknown indication
     Dosage: TWICE A DAY AT 8 A.M. AND 8 P.M. FOR 21 DAYS
  7. POLAPREZINC [Concomitant]
     Active Substance: POLAPREZINC
     Indication: Product used for unknown indication
     Dosage: TWICE A DAY, AFTER BREAKFAST AND DINNER, FOR 21 DAYS
  8. CALCIUM CARBONATE\CHOLECALCIFEROL\MAGNESIUM CARBONATE [Concomitant]
     Active Substance: CALCIUM CARBONATE\CHOLECALCIFEROL\MAGNESIUM CARBONATE
     Indication: Product used for unknown indication
     Dosage: TWICE A DAY AFTER BREAKFAST FOR 21 DAYS
  9. SODIUM BICARBONATE\SODIUM PHOSPHATE, MONOBASIC [Concomitant]
     Active Substance: SODIUM BICARBONATE\SODIUM PHOSPHATE, MONOBASIC
     Indication: Product used for unknown indication
     Dosage: INSERT INTO THE ANUS ONCE A DAY WHEN CONSTIPATED
  10. PURSENNIDE [SENNA ALEXANDRINA LEAF] [Concomitant]
     Indication: Product used for unknown indication
     Dosage: WHEN CONSTIPATED
  11. EDOXABAN TOSYLATE [Concomitant]
     Active Substance: EDOXABAN TOSYLATE
     Indication: Product used for unknown indication

REACTIONS (3)
  - Immune thrombocytopenia [Recovering/Resolving]
  - Pyrexia [Recovered/Resolved]
  - Decreased appetite [Recovered/Resolved]

NARRATIVE: CASE EVENT DATE: 20250503
